FAERS Safety Report 16639050 (Version 1)
Quarter: 2019Q3

REPORT INFORMATION
  Report Type: Spontaneous
  Country: US (occurrence: US)
  Receive Date: 20190726
  Receipt Date: 20190726
  Transmission Date: 20191004
  Serious: No
  Sender: FDA-Public Use
  Company Number: US-TEVA-2019-US-1083515

PATIENT
  Sex: Female

DRUGS (1)
  1. TRIAMTERENE W/HCTZ [Suspect]
     Active Substance: HYDROCHLOROTHIAZIDE\TRIAMTERENE
     Dosage: FORM STRENGTH: TRIAMTERENE 37.5 MG /HYDROCHLOROTHIAZIDE 25 MG
     Route: 065

REACTIONS (1)
  - Pruritus [Unknown]
